FAERS Safety Report 12891056 (Version 1)
Quarter: 2016Q4

REPORT INFORMATION
  Report Type: Spontaneous
  Country: None (occurrence: US)
  Receive Date: 20161025
  Receipt Date: 20161025
  Transmission Date: 20170207
  Serious: No
  Sender: FDA-Public Use
  Company Number: None

PATIENT
  Age: 88 Year
  Sex: Female

DRUGS (1)
  1. IMATINIB 100MG SUN [Suspect]
     Active Substance: IMATINIB
     Indication: CHRONIC MYELOID LEUKAEMIA
     Route: 048
     Dates: start: 20160223, end: 20160323

REACTIONS (4)
  - Pain [None]
  - Insomnia [None]
  - Oedema [None]
  - Headache [None]

NARRATIVE: CASE EVENT DATE: 20160316
